FAERS Safety Report 20411298 (Version 1)
Quarter: 2022Q1

REPORT INFORMATION
  Report Type: Spontaneous
  Country: US (occurrence: None)
  Receive Date: 20220201
  Receipt Date: 20220201
  Transmission Date: 20220424
  Serious: Yes (Hospitalization, Other)
  Sender: FDA-Public Use
  Company Number: None

PATIENT
  Age: 0 Year
  Sex: Female
  Weight: 2 kg

DRUGS (6)
  1. SEROQUEL [Suspect]
     Active Substance: QUETIAPINE FUMARATE
  2. LITHOBID [Suspect]
     Active Substance: LITHIUM CARBONATE
  3. SYNTHROID [Suspect]
     Active Substance: LEVOTHYROXINE SODIUM
  4. KLONOPIN [Suspect]
     Active Substance: CLONAZEPAM
  5. PROZAC [Suspect]
     Active Substance: FLUOXETINE HYDROCHLORIDE
  6. PROGESTERONE [Suspect]
     Active Substance: PROGESTERONE

REACTIONS (3)
  - Premature baby [None]
  - Poor feeding infant [None]
  - Jaundice neonatal [None]

NARRATIVE: CASE EVENT DATE: 20200416
